FAERS Safety Report 18749603 (Version 3)
Quarter: 2021Q3

REPORT INFORMATION
  Report Type: Report from Study
  Country: US (occurrence: US)
  Receive Date: 20210117
  Receipt Date: 20210819
  Transmission Date: 20211014
  Serious: No
  Sender: FDA-Public Use
  Company Number: NVSC2021US008614

PATIENT
  Age: 50 Year
  Sex: Female

DRUGS (3)
  1. KESIMPTA [Suspect]
     Active Substance: OFATUMUMAB
     Indication: SECONDARY PROGRESSIVE MULTIPLE SCLEROSIS
  2. KESIMPTA [Suspect]
     Active Substance: OFATUMUMAB
     Indication: RELAPSING-REMITTING MULTIPLE SCLEROSIS
  3. KESIMPTA [Suspect]
     Active Substance: OFATUMUMAB
     Indication: MULTIPLE SCLEROSIS
     Dosage: 20 UNK
     Route: 058
     Dates: start: 20201118

REACTIONS (4)
  - Laboratory test abnormal [Not Recovered/Not Resolved]
  - Dysphagia [Unknown]
  - Hepatic enzyme increased [Not Recovered/Not Resolved]
  - Speech disorder [Unknown]

NARRATIVE: CASE EVENT DATE: 20210108
